FAERS Safety Report 9199763 (Version 1)
Quarter: 2013Q1

REPORT INFORMATION
  Report Type: Spontaneous
  Country: US (occurrence: None)
  Receive Date: 20130326
  Receipt Date: 20130326
  Transmission Date: 20140127
  Serious: Yes (Other)
  Sender: FDA-Public Use
  Company Number: 2013P1003415

PATIENT
  Sex: 0

DRUGS (1)
  1. OXTELLAR XR [Suspect]

REACTIONS (1)
  - Epileptic aura [None]
